FAERS Safety Report 24767325 (Version 2)
Quarter: 2025Q2

REPORT INFORMATION
  Report Type: Spontaneous
  Country: JP (occurrence: JP)
  Receive Date: 20241223
  Receipt Date: 20250527
  Transmission Date: 20250717
  Serious: Yes (Life-Threatening, Hospitalization, Other)
  Sender: ALEXION PHARMACEUTICALS
  Company Number: JP-ASTRAZENECA-240144148_013120_P_1

PATIENT
  Age: 51 Year
  Weight: 39 kg

DRUGS (7)
  1. IMFINZI [Suspect]
     Active Substance: DURVALUMAB
     Indication: Non-small cell lung cancer
     Dosage: 1500 MILLIGRAM, Q3W
  2. IMJUDO [Suspect]
     Active Substance: TREMELIMUMAB\TREMELIMUMAB-ACTL
     Indication: Non-small cell lung cancer
     Dosage: 300 MILLIGRAM, Q3W
  3. PACLITAXEL [Suspect]
     Active Substance: PACLITAXEL
     Indication: Non-small cell lung cancer
  4. MIYA-BM [Concomitant]
     Active Substance: CLOSTRIDIUM BUTYRICUM SPORES STRAIN M-55
  5. CALONAL [Concomitant]
     Active Substance: ACETAMINOPHEN
  6. VONOPRAZAN FUMARATE [Concomitant]
     Active Substance: VONOPRAZAN FUMARATE
  7. URSODIOL [Concomitant]
     Active Substance: URSODIOL

REACTIONS (4)
  - Interstitial lung disease [Not Recovered/Not Resolved]
  - Pancreatitis [Unknown]
  - Respiratory failure [Unknown]
  - Dermatitis [Unknown]
